FAERS Safety Report 9555803 (Version 1)
Quarter: 2013Q3

REPORT INFORMATION
  Report Type: Spontaneous
  Country: US (occurrence: None)
  Receive Date: 20130925
  Receipt Date: 20130925
  Transmission Date: 20140515
  Serious: Yes (Disabling)
  Sender: FDA-Public Use
  Company Number: None

PATIENT
  Age: 22 Year
  Sex: Male
  Weight: 99.79 kg

DRUGS (1)
  1. CIPROFLOXACIN [Suspect]
     Indication: PROSTATITIS
     Dosage: 1 PILL
     Route: 048
     Dates: start: 20130617, end: 20130627

REACTIONS (13)
  - Anxiety [None]
  - Dizziness [None]
  - Constipation [None]
  - Flatulence [None]
  - Hypertension [None]
  - Heart rate increased [None]
  - Dyspnoea [None]
  - Sleep disorder [None]
  - Fatigue [None]
  - Teething [None]
  - Muscle twitching [None]
  - Muscular weakness [None]
  - Tendon pain [None]
